FAERS Safety Report 4734026-5 (Version None)
Quarter: 2005Q3

REPORT INFORMATION
  Report Type: 
  Country: None (occurrence: None)
  Receive Date: 20050721
  Receipt Date: 20050510
  Transmission Date: 20060218
  Serious: No
  Sender: FDA-Public Use
  Company Number: 2005SP000668

PATIENT
  Age: 74 Year
  Sex: Male
  Weight: 83.9154 kg

DRUGS (4)
  1. LUNESTA [Suspect]
     Indication: SLEEP APNOEA SYNDROME
     Dosage: 1 MG; 2 MG : HS; ORAL
     Route: 048
     Dates: start: 20050509, end: 20050501
  2. LUNESTA [Suspect]
     Indication: SLEEP APNOEA SYNDROME
     Dosage: 1 MG; 2 MG : HS; ORAL
     Route: 048
     Dates: start: 20050511, end: 20050501
  3. LIPITOR [Concomitant]
  4. AMBIEN [Concomitant]

REACTIONS (1)
  - INSOMNIA [None]
